FAERS Safety Report 19407556 (Version 1)
Quarter: 2021Q2

REPORT INFORMATION
  Report Type: Spontaneous
  Country: US (occurrence: US)
  Receive Date: 20210611
  Receipt Date: 20210611
  Transmission Date: 20210717
  Serious: No
  Sender: FDA-Public Use
  Company Number: US-BAYER-2021-152613

PATIENT
  Sex: Male

DRUGS (1)
  1. NUBEQA [Suspect]
     Active Substance: DAROLUTAMIDE
     Dosage: 2 DF, BID
     Route: 048

REACTIONS (3)
  - Insomnia [Recovering/Resolving]
  - Fatigue [Recovering/Resolving]
  - General physical health deterioration [Recovering/Resolving]
